FAERS Safety Report 9052747 (Version 1)
Quarter: 2013Q1

REPORT INFORMATION
  Report Type: Spontaneous
  Country: US (occurrence: US)
  Receive Date: 20130207
  Receipt Date: 20130207
  Transmission Date: 20140127
  Serious: No
  Sender: FDA-Public Use
  Company Number: US-B.I. PHARMACEUTICALS,INC./RIDGEFIELD-2013-BI-03441BP

PATIENT
  Age: 59 Year
  Sex: Female

DRUGS (9)
  1. SPIRIVA [Suspect]
     Indication: ASTHMA
     Dosage: 18 MCG
     Route: 055
     Dates: start: 20130107
  2. PEGASUS [Concomitant]
     Indication: HEPATITIS C
     Dosage: 180 MCG
     Route: 058
  3. RIBAVIRIN [Concomitant]
     Dosage: 1200 MG
     Route: 048
  4. FLOVENT [Concomitant]
     Dosage: 4 PUF
     Route: 055
  5. SINGULAIR [Concomitant]
     Dosage: 10 MG
     Route: 048
  6. HYDROCHLOROTHIAZIDE [Concomitant]
     Indication: HYPERTENSION
     Dosage: 12.5 MG
     Route: 048
  7. DICLOFENAC [Concomitant]
     Indication: OSTEOARTHRITIS
     Dosage: 75 MG
     Route: 048
  8. TRAMADOL [Concomitant]
     Dosage: 50 MG
     Route: 048
  9. NEXIUM [Concomitant]
     Dosage: 20 MG
     Route: 048

REACTIONS (2)
  - Stomatitis [Recovered/Resolved]
  - Skin disorder [Not Recovered/Not Resolved]
